FAERS Safety Report 6601092-1 (Version None)
Quarter: 2010Q1

REPORT INFORMATION
  Report Type: 
  Country: None (occurrence: None)
  Receive Date: 20100225
  Receipt Date: 20100212
  Transmission Date: 20100710
  Serious: Yes (Hospitalization, Other)
  Sender: FDA-Public Use
  Company Number: PHHY2010FR08783

PATIENT
  Sex: Female

DRUGS (3)
  1. NISIS [Suspect]
     Indication: HYPERTENSION
     Dosage: UNK
     Dates: start: 20030101
  2. LERCAN [Concomitant]
  3. TEMERIT [Concomitant]

REACTIONS (2)
  - CAESAREAN SECTION [None]
  - DRUG EXPOSURE DURING PREGNANCY [None]
